FAERS Safety Report 8340655-2 (Version None)
Quarter: 2012Q2

REPORT INFORMATION
  Report Type: 
  Country: None (occurrence: None)
  Receive Date: 20120507
  Receipt Date: 20120427
  Transmission Date: 20120825
  Serious: Yes (Death, Hospitalization)
  Sender: FDA-Public Use
  Company Number: DE-ROCHE-726001

PATIENT
  Sex: Male
  Weight: 84 kg

DRUGS (5)
  1. FLUOROURACIL [Suspect]
     Dosage: 2 CYCLES 5-FU AT 1000 MG/M2 WITH ADDITIONAL RADIOTHERAPY.
     Route: 042
     Dates: start: 20090427, end: 20090622
  2. FLUOROURACIL [Suspect]
     Indication: COLORECTAL CANCER METASTATIC
     Dosage: 300 MG/M2 GIVEN AS BOLUS. 5 TH CYCLE.
     Route: 042
     Dates: start: 20090922, end: 20100810
  3. FOLINIC ACID [Concomitant]
     Indication: COLORECTAL CANCER METASTATIC
     Dosage: 5 TH CYCLE
     Route: 042
     Dates: start: 20090922, end: 20100810
  4. IRINOTECAN HCL [Suspect]
     Indication: COLORECTAL CANCER METASTATIC
     Dosage: 5 TH CYCLE GIVEN.
     Route: 042
     Dates: start: 20090922, end: 20100810
  5. AVASTIN [Suspect]
     Indication: COLORECTAL CANCER METASTATIC
     Dosage: 5 TH CYCLE GIVEN.
     Route: 042
     Dates: start: 20090922, end: 20100810

REACTIONS (2)
  - DIARRHOEA [None]
  - ILEAL FISTULA [None]
